FAERS Safety Report 7194165-9 (Version None)
Quarter: 2010Q4

REPORT INFORMATION
  Report Type: 
  Country: None (occurrence: None)
  Receive Date: 20101223
  Receipt Date: 20101013
  Transmission Date: 20110411
  Serious: No
  Sender: FDA-Public Use
  Company Number: US-AMGEN INC.-TCS436626

PATIENT

DRUGS (6)
  1. ENBREL [Suspect]
     Indication: PSORIASIS
     Dosage: 50 MG, UNK
     Route: 058
     Dates: start: 20080221, end: 20100101
  2. SYNTHROID [Concomitant]
  3. PAXIL [Concomitant]
  4. ASPIRIN [Concomitant]
  5. BONIVA [Concomitant]
  6. VALTREX [Concomitant]

REACTIONS (4)
  - ARTHROPOD BITE [None]
  - HERPES SIMPLEX [None]
  - PSORIASIS [None]
  - SKIN PAPILLOMA [None]
